FAERS Safety Report 7026305-6 (Version None)
Quarter: 2010Q4

REPORT INFORMATION
  Report Type: 
  Country: None (occurrence: None)
  Receive Date: 20101004
  Receipt Date: 20100922
  Transmission Date: 20110411
  Serious: Yes (Hospitalization, Other)
  Sender: FDA-Public Use
  Company Number: JP-PFIZER INC-2010096213

PATIENT
  Age: 71 Year
  Sex: Female
  Weight: 40 kg

DRUGS (3)
  1. ZOLOFT [Suspect]
     Indication: DEPRESSED MOOD
     Dosage: 25 MG, 1X/DAY
     Route: 048
     Dates: start: 20100707, end: 20100719
  2. ZOLOFT [Suspect]
     Dosage: 50 MG, 1X/DAY
     Route: 048
     Dates: start: 20100715, end: 20100719
  3. RISPERIDONE [Concomitant]
     Indication: DELIRIUM
     Dosage: 0.5 MG, 1X/DAY
     Route: 048
     Dates: start: 20100711, end: 20100719

REACTIONS (3)
  - ALTERED STATE OF CONSCIOUSNESS [None]
  - INAPPROPRIATE ANTIDIURETIC HORMONE SECRETION [None]
  - MOUTH BREATHING [None]
